FAERS Safety Report 7755371-5 (Version None)
Quarter: 2011Q3

REPORT INFORMATION
  Report Type: 
  Country: None (occurrence: None)
  Receive Date: 20110825
  Receipt Date: 20110721
  Transmission Date: 20111222
  Serious: No
  Sender: FDA-Public Use
  Company Number: 332509

PATIENT
  Age: 61 Year
  Sex: Female

DRUGS (3)
  1. GLUCOVANCE [Concomitant]
  2. VICTOZA [Suspect]
     Indication: TYPE 2 DIABETES MELLITUS
     Dosage: 0.6 U, QD, SUBCUTANEOUS, 1.2 U, QD, SUBCUTANEOUS
     Route: 058
     Dates: start: 20110710
  3. VICTOZA [Suspect]
     Indication: TYPE 2 DIABETES MELLITUS
     Dosage: 0.6 U, QD, SUBCUTANEOUS, 1.2 U, QD, SUBCUTANEOUS
     Route: 058
     Dates: start: 20110710

REACTIONS (3)
  - NAUSEA [None]
  - SALIVARY HYPERSECRETION [None]
  - DISCOMFORT [None]
